FAERS Safety Report 6976576-7 (Version None)
Quarter: 2010Q3

REPORT INFORMATION
  Report Type: 
  Country: None (occurrence: None)
  Receive Date: 20100910
  Receipt Date: 20100830
  Transmission Date: 20110219
  Serious: Yes (Other)
  Sender: FDA-Public Use
  Company Number: US-PFIZER INC-2010069894

PATIENT
  Sex: Female

DRUGS (2)
  1. CHANTIX [Suspect]
     Indication: SMOKING CESSATION THERAPY
     Dosage: 3 MONTH SUPPLY
     Dates: start: 20080601, end: 20081101
  2. LYRICA [Concomitant]
     Indication: NERVE INJURY
     Dosage: UNK
     Dates: start: 20050101, end: 20081121

REACTIONS (12)
  - ABNORMAL BEHAVIOUR [None]
  - AGGRESSION [None]
  - ANXIETY [None]
  - DEPRESSION [None]
  - HALLUCINATION, AUDITORY [None]
  - HALLUCINATION, TACTILE [None]
  - HALLUCINATION, VISUAL [None]
  - MEMORY IMPAIRMENT [None]
  - NIGHTMARE [None]
  - PSYCHOTIC DISORDER [None]
  - SLEEP PHASE RHYTHM DISTURBANCE [None]
  - SUICIDAL IDEATION [None]
